FAERS Safety Report 25406535 (Version 3)
Quarter: 2025Q2

REPORT INFORMATION
  Report Type: Report from Study
  Country: BR (occurrence: BR)
  Receive Date: 20250606
  Receipt Date: 20250626
  Transmission Date: 20250716
  Serious: Yes (Other)
  Sender: NOVARTIS
  Company Number: BR-002147023-NVSC2025BR074777

PATIENT
  Age: 76 Year
  Sex: Female
  Weight: 50 kg

DRUGS (1)
  1. KISQALI [Suspect]
     Active Substance: RIBOCICLIB SUCCINATE
     Indication: Breast cancer
     Dosage: 3 DOSAGE FORM, QD (21 DAY CYCLE)
     Route: 065
     Dates: end: 202503

REACTIONS (3)
  - Metastasis [Unknown]
  - Human epidermal growth factor receptor positive [Unknown]
  - Gene mutation [Unknown]

NARRATIVE: CASE EVENT DATE: 20250301
